FAERS Safety Report 5116649-7 (Version None)
Quarter: 2006Q3

REPORT INFORMATION
  Report Type: 
  Country: None (occurrence: None)
  Receive Date: 20060928
  Receipt Date: 20060922
  Transmission Date: 20061208
  Serious: Yes (Hospitalization)
  Sender: FDA-Public Use
  Company Number: US-GLAXOSMITHKLINE-A0621712A

PATIENT
  Age: 43 Year
  Sex: Male

DRUGS (3)
  1. REQUIP [Suspect]
     Indication: RESTLESS LEGS SYNDROME
     Dosage: .5MG PER DAY
     Route: 048
     Dates: start: 20060601
  2. ZOCOR [Concomitant]
  3. NEURONTIN [Concomitant]

REACTIONS (2)
  - NEPHROLITHIASIS [None]
  - VOMITING [None]
